FAERS Safety Report 4874393-5 (Version None)
Quarter: 2006Q1

REPORT INFORMATION
  Report Type: 
  Country: None (occurrence: None)
  Receive Date: 20060104
  Receipt Date: 20060104
  Transmission Date: 20060701
  Serious: Yes (Death, Life-Threatening, Hospitalization)
  Sender: FDA-Public Use
  Company Number: None

PATIENT
  Age: 1 Year
  Sex: Female
  Weight: 10.8 kg

DRUGS (4)
  1. ELIDEL [Suspect]
     Indication: ECZEMA
  2. ZYRTEC [Concomitant]
  3. CEFTIN [Concomitant]
  4. IBUPROFEN [Concomitant]

REACTIONS (1)
  - ACUTE MYELOID LEUKAEMIA [None]
